FAERS Safety Report 10169255 (Version 1)
Quarter: 2014Q2

REPORT INFORMATION
  Report Type: Spontaneous
  Country: US (occurrence: None)
  Receive Date: 20140512
  Receipt Date: 20140512
  Transmission Date: 20141212
  Serious: Yes (Life-Threatening, Hospitalization)
  Sender: FDA-Public Use
  Company Number: None

PATIENT
  Age: 50 Year
  Sex: Male
  Weight: 113.2 kg

DRUGS (1)
  1. ACETAMINOPHEN [Suspect]
     Indication: PAIN

REACTIONS (9)
  - Suicide attempt [None]
  - Depression [None]
  - Acute hepatic failure [None]
  - Vomiting [None]
  - Intentional self-injury [None]
  - Laceration [None]
  - Stab wound [None]
  - Overdose [None]
  - Exposure via ingestion [None]
